FAERS Safety Report 10755211 (Version 1)
Quarter: 2015Q1

REPORT INFORMATION
  Report Type: Spontaneous
  Country: US (occurrence: None)
  Receive Date: 20150123
  Receipt Date: 20150123
  Transmission Date: 20150721
  Serious: Yes (Hospitalization)
  Sender: FDA-Public Use
  Company Number: TPA2011A00557

PATIENT
  Age: 71 Year
  Sex: Female
  Weight: 81.65 kg

DRUGS (5)
  1. PREVACID SOLUTAB [Suspect]
     Active Substance: LANSOPRAZOLE
     Indication: OESOPHAGEAL INJURY
     Route: 048
     Dates: start: 2001, end: 20110126
  2. OSCAL (CALCIUM CARBONATE) [Concomitant]
  3. ACTONEL (RISEDRONATE SODIUM) [Concomitant]
  4. PREVACID SOLUTAB [Suspect]
     Active Substance: LANSOPRAZOLE
     Indication: OESOPHAGEAL IRRITATION
     Route: 048
     Dates: start: 2001, end: 20110126
  5. VITAMINS (VITAMINS) [Concomitant]

REACTIONS (2)
  - Osteomalacia [None]
  - Drug ineffective [None]

NARRATIVE: CASE EVENT DATE: 2007
